FAERS Safety Report 9681971 (Version 2)
Quarter: 2013Q4

REPORT INFORMATION
  Report Type: Spontaneous
  Country: None (occurrence: JP)
  Receive Date: 20131111
  Receipt Date: 20131120
  Transmission Date: 20140711
  Serious: Yes (Death)
  Sender: FDA-Public Use
  Company Number: JP-EISAI INC-E2090-02961-SPO-JP

PATIENT
  Age: 87 Year
  Sex: Female

DRUGS (5)
  1. TRERIEF [Suspect]
     Indication: PARKINSON^S DISEASE
     Route: 048
     Dates: start: 20121001, end: 20131027
  2. TRERIEF [Suspect]
     Dosage: 50 MG /DAY
     Route: 048
     Dates: start: 20131028
  3. SYMMETREL [Concomitant]
     Indication: PARKINSON^S DISEASE
     Dosage: 100 MG/DAY
     Route: 048
     Dates: start: 20130218
  4. NEODOPASTON [Concomitant]
     Indication: PARKINSON^S DISEASE
     Dosage: 150 MG/DAY
     Route: 048
     Dates: start: 20130228, end: 20130403
  5. NEODOPASTON [Concomitant]
     Dosage: 300 MG/DAY
     Route: 048
     Dates: start: 20130404

REACTIONS (1)
  - Myocardial infarction [Fatal]
